FAERS Safety Report 7055161-5 (Version None)
Quarter: 2010Q4

REPORT INFORMATION
  Report Type: 
  Country: None (occurrence: None)
  Receive Date: 20101021
  Receipt Date: 20101008
  Transmission Date: 20110411
  Serious: Yes (Other)
  Sender: FDA-Public Use
  Company Number: PHHY2010BR67584

PATIENT
  Sex: Female

DRUGS (1)
  1. ACLASTA [Suspect]
     Dosage: 5MG/100ML
     Route: 042

REACTIONS (3)
  - DENTAL IMPLANTATION [None]
  - TENDON RUPTURE [None]
  - UPPER LIMB FRACTURE [None]
